FAERS Safety Report 18643466 (Version 6)
Quarter: 2021Q3

REPORT INFORMATION
  Report Type: Spontaneous
  Country: CA (occurrence: CA)
  Receive Date: 20201221
  Receipt Date: 20210816
  Transmission Date: 20211014
  Serious: Yes (Other)
  Sender: FDA-Public Use
  Company Number: CA-PFIZER INC-2020498436

PATIENT
  Age: 68 Year
  Sex: Male
  Weight: 96 kg

DRUGS (9)
  1. VALACYCLOVIR [Concomitant]
     Active Substance: VALACYCLOVIR HYDROCHLORIDE
     Dosage: 1000 MG, 1X/DAY
     Route: 048
  2. BENADRYL [Concomitant]
     Active Substance: DIPHENHYDRAMINE HYDROCHLORIDE
     Indication: PREMEDICATION
     Dosage: 50 MG
     Route: 048
  3. RUXIENCE [Suspect]
     Active Substance: RITUXIMAB-PVVR
     Indication: MICROSCOPIC POLYANGIITIS
     Dosage: 500 MG Q 6 MONTHS X 2 YEARS
     Route: 042
     Dates: start: 202001, end: 20200710
  4. METHYLPREDNISOLONE. [Concomitant]
     Active Substance: METHYLPREDNISOLONE
     Indication: PREMEDICATION
     Dosage: 100 G
     Route: 042
  5. VITAMIN D [COLECALCIFEROL] [Concomitant]
     Active Substance: CHOLECALCIFEROL
     Dosage: 2000 MG, DAILY
  6. RUXIENCE [Suspect]
     Active Substance: RITUXIMAB-PVVR
     Indication: GRANULOMATOSIS WITH POLYANGIITIS
     Dosage: 500 MG Q 6 MONTHS X 2 YEARS
     Route: 042
     Dates: start: 20200710, end: 20200710
  7. RUXIENCE [Suspect]
     Active Substance: RITUXIMAB-PVVR
     Dosage: 500 MG, EVERY 6 MONTHS
     Route: 042
     Dates: start: 20210209
  8. DAPSONE. [Concomitant]
     Active Substance: DAPSONE
     Dosage: 100 MG, DAILY
  9. TYLENOL [Concomitant]
     Active Substance: ACETAMINOPHEN
     Indication: PREMEDICATION
     Dosage: 650 MG
     Route: 048

REACTIONS (7)
  - Blood pressure fluctuation [Unknown]
  - Off label use [Unknown]
  - Neuropathy peripheral [Unknown]
  - Intentional product use issue [Unknown]
  - Off label use [Unknown]
  - Antineutrophil cytoplasmic antibody positive [Unknown]
  - Weight decreased [Unknown]

NARRATIVE: CASE EVENT DATE: 202001
